FAERS Safety Report 23455405 (Version 2)
Quarter: 2024Q1

REPORT INFORMATION
  Report Type: Report from Study
  Country: US (occurrence: US)
  Receive Date: 20240130
  Receipt Date: 20240219
  Transmission Date: 20240410
  Serious: Yes (Hospitalization, Other)
  Sender: FDA-Public Use
  Company Number: US-AMGEN-USASL2023145712

PATIENT
  Age: 72 Year
  Sex: Female

DRUGS (2)
  1. OTEZLA [Suspect]
     Active Substance: APREMILAST
     Indication: Psoriasis
     Dosage: UNK UNK, BID
     Route: 065
  2. OTEZLA [Suspect]
     Active Substance: APREMILAST
     Dosage: 30 MILLIGRAM, BID
     Route: 065

REACTIONS (8)
  - COVID-19 pneumonia [Unknown]
  - Cerebrovascular accident [Unknown]
  - Unevaluable event [Unknown]
  - Arthropathy [Unknown]
  - Hip surgery [Unknown]
  - Fall [Unknown]
  - Product administration interrupted [Unknown]
  - Dehydration [Unknown]

NARRATIVE: CASE EVENT DATE: 20150201
